FAERS Safety Report 6197233-3 (Version None)
Quarter: 2009Q2

REPORT INFORMATION
  Report Type: 
  Country: None (occurrence: None)
  Receive Date: 20090521
  Receipt Date: 20070328
  Transmission Date: 20091009
  Serious: Yes (Other)
  Sender: FDA-Public Use
  Company Number: US-ASTRAZENECA-2006UW22565

PATIENT
  Age: 12570 Day
  Sex: Male
  Weight: 111.1 kg

DRUGS (29)
  1. SEROQUEL [Suspect]
     Dosage: 100-200 MG
     Route: 048
     Dates: start: 20031003
  2. CLONAZEPAM [Concomitant]
     Dosage: 1-2MG
     Route: 048
  3. KETOROLAC [Concomitant]
     Route: 048
  4. HYDROCODONE BITARTRATE [Concomitant]
     Dosage: STRENGTH-7.5/500
     Route: 048
  5. ZOLOFT [Concomitant]
     Dosage: 100-250MG
     Route: 048
  6. SKELAXIN [Concomitant]
  7. ACETAMINOPHEN [Concomitant]
  8. PROPOXYPHENE NAPSYLATE [Concomitant]
  9. HYOSCYAMINE SULFATE [Concomitant]
  10. GUAIFENESIN [Concomitant]
  11. MUPIROCIN [Concomitant]
     Route: 061
  12. CEPHALEXIN [Concomitant]
     Route: 048
  13. DICYCLOMINE [Concomitant]
     Route: 065
  14. RANITIDINE [Concomitant]
     Route: 048
  15. TOBRAMYCIN [Concomitant]
  16. OXYCODONE HCL [Concomitant]
     Route: 048
  17. PROMETHAZINE [Concomitant]
  18. ASPIRIN [Concomitant]
  19. RIMEXOLONE [Concomitant]
     Route: 047
  20. QUINAPRIL [Concomitant]
     Route: 048
  21. FOSINOPRIL SODIUM [Concomitant]
  22. TAMSULOSIN HCL [Concomitant]
  23. MEPERIDINE HCL [Concomitant]
  24. IBUPROFEN [Concomitant]
     Route: 048
  25. GLUCOPHAGE [Concomitant]
  26. AMBIEN [Concomitant]
  27. REMERON [Concomitant]
  28. LEXAPRO [Concomitant]
  29. LUNESTA [Concomitant]
     Dosage: 2-3 MG

REACTIONS (7)
  - ANXIETY [None]
  - INFLUENZA [None]
  - INSOMNIA [None]
  - POST-TRAUMATIC STRESS DISORDER [None]
  - SLEEP TERROR [None]
  - TREMOR [None]
  - VISION BLURRED [None]
